FAERS Safety Report 21130567 (Version 1)
Quarter: 2022Q3

REPORT INFORMATION
  Report Type: Spontaneous
  Country: US (occurrence: US)
  Receive Date: 20220726
  Receipt Date: 20220726
  Transmission Date: 20221027
  Serious: Yes (Other)
  Sender: FDA-Public Use
  Company Number: US-BRISTOL-MYERS SQUIBB COMPANY-2022-078545

PATIENT
  Age: 61 Year
  Sex: Female

DRUGS (1)
  1. REVLIMID [Suspect]
     Active Substance: LENALIDOMIDE
     Indication: Plasma cell myeloma
     Dosage: 1QD X14 ON THEN 7 DAYS OF
     Route: 048
     Dates: start: 20191007, end: 20220501

REACTIONS (2)
  - Gastrointestinal haemorrhage [Recovering/Resolving]
  - Off label use [Unknown]
